FAERS Safety Report 5197135-5 (Version None)
Quarter: 2007Q1

REPORT INFORMATION
  Report Type: 
  Country: None (occurrence: None)
  Receive Date: 20070103
  Receipt Date: 20061227
  Transmission Date: 20070707
  Serious: Yes (Disabling)
  Sender: FDA-Public Use
  Company Number: US-GLAXOSMITHKLINE-A0633352A

PATIENT
  Sex: Female

DRUGS (1)
  1. REQUIP [Suspect]

REACTIONS (2)
  - DECREASED ACTIVITY [None]
  - DISABILITY [None]
